FAERS Safety Report 4540362-8 (Version None)
Quarter: 2004Q4

REPORT INFORMATION
  Report Type: 
  Country: None (occurrence: None)
  Receive Date: 20041222
  Receipt Date: 20041207
  Transmission Date: 20050328
  Serious: Yes (Hospitalization)
  Sender: FDA-Public Use
  Company Number: EWC041241786

PATIENT
  Age: 65 Year
  Sex: Male
  Weight: 86 kg

DRUGS (6)
  1. SOMATROPIN [Suspect]
     Indication: GROWTH HORMONE DEFICIENCY
     Dosage: 0.3 MG DAY
     Dates: start: 20020419, end: 20041010
  2. GLIBENCLAMIDE W/METFORMIN HYDROCHLORIDE [Concomitant]
  3. ENALAPRIL W/HYDROCHLOROTHIAZIDE [Concomitant]
  4. ACETYLSALICYLIC ACID SRT [Concomitant]
  5. NIFEDIPINE [Concomitant]
  6. ALLOPURINOL [Concomitant]

REACTIONS (2)
  - EMPHYSEMA [None]
  - SLEEP APNOEA SYNDROME [None]
